FAERS Safety Report 18601993 (Version 5)
Quarter: 2022Q1

REPORT INFORMATION
  Report Type: Report from Study
  Country: US (occurrence: US)
  Receive Date: 20201210
  Receipt Date: 20220107
  Transmission Date: 20220424
  Serious: Yes (Hospitalization, Other)
  Sender: FDA-Public Use
  Company Number: US-TAKEDA-2020TUS056444

PATIENT
  Age: 75 Year
  Sex: Male

DRUGS (2)
  1. BRIGATINIB [Suspect]
     Active Substance: BRIGATINIB
     Indication: Non-small cell lung cancer
     Dosage: 180 MILLIGRAM
     Route: 065
  2. BRIGATINIB [Suspect]
     Active Substance: BRIGATINIB
     Dosage: 90 MILLIGRAM, QOD
     Route: 048
     Dates: start: 202010, end: 202110

REACTIONS (9)
  - Sepsis [Recovered/Resolved]
  - Urinary tract infection [Unknown]
  - Renal failure [Not Recovered/Not Resolved]
  - Pneumonia [Unknown]
  - Urosepsis [Unknown]
  - Cardiac failure congestive [Unknown]
  - Cough [Recovered/Resolved]
  - Cystitis [Unknown]
  - Product dose omission issue [Unknown]

NARRATIVE: CASE EVENT DATE: 20210827
